FAERS Safety Report 13001363 (Version 3)
Quarter: 2017Q1

REPORT INFORMATION
  Report Type: Spontaneous
  Country: US (occurrence: US)
  Receive Date: 20161206
  Receipt Date: 20170317
  Transmission Date: 20170428
  Serious: Yes (Hospitalization, Other)
  Sender: FDA-Public Use
  Company Number: US-009507513-1611USA013982

PATIENT
  Age: 78 Year
  Sex: Female

DRUGS (2)
  1. KEYTRUDA [Suspect]
     Active Substance: PEMBROLIZUMAB
     Indication: LUNG NEOPLASM MALIGNANT
     Dosage: 200 MG, Q3W
     Route: 042
     Dates: start: 20161110, end: 20161127
  2. KEYTRUDA [Suspect]
     Active Substance: PEMBROLIZUMAB
     Indication: BRAIN NEOPLASM MALIGNANT

REACTIONS (1)
  - Neoplasm malignant [Not Recovered/Not Resolved]

NARRATIVE: CASE EVENT DATE: 20161126
